FAERS Safety Report 14562388 (Version 2)
Quarter: 2018Q1

REPORT INFORMATION
  Report Type: Spontaneous
  Country: US (occurrence: US)
  Receive Date: 20180222
  Receipt Date: 20180228
  Transmission Date: 20180509
  Serious: Yes (Other)
  Sender: FDA-Public Use
  Company Number: US-DRREDDYS-USA/USA/18/0096387

PATIENT
  Age: 86 Year
  Sex: Female

DRUGS (4)
  1. TECHNETIUM (99MTC) TETROFOSMIN [Concomitant]
     Dosage: 1110 MBQ
     Route: 065
  2. NITROGLYCERIN. [Suspect]
     Active Substance: NITROGLYCERIN
     Indication: CHEST PAIN
     Route: 060
  3. REGADENOSON [Concomitant]
     Active Substance: REGADENOSON
     Indication: PRODUCT USED FOR UNKNOWN INDICATION
     Route: 065
  4. TECHNETIUM (99MTC) TETROFOSMIN [Concomitant]
     Indication: PRODUCT USED FOR UNKNOWN INDICATION
     Dosage: 407 MBQ
     Route: 065

REACTIONS (7)
  - Dilatation ventricular [Recovered/Resolved]
  - Hypotension [Recovered/Resolved]
  - Condition aggravated [Recovered/Resolved]
  - Cardiac stress test abnormal [Recovered/Resolved]
  - Mental status changes [Recovered/Resolved]
  - Electrocardiogram ST segment elevation [Recovered/Resolved]
  - Lethargy [Recovered/Resolved]
